FAERS Safety Report 22028274 (Version 1)
Quarter: 2023Q1

REPORT INFORMATION
  Report Type: Spontaneous
  Country: US (occurrence: None)
  Receive Date: 20230223
  Receipt Date: 20230223
  Transmission Date: 20230418
  Serious: No
  Sender: FDA-Public Use
  Company Number: US-ROCHE-3178043

PATIENT
  Sex: Female

DRUGS (4)
  1. NUTROPIN [Suspect]
     Active Substance: SOMATROPIN
     Indication: Hypothyroidism
     Dosage: 20MG/2 ML, DAILY
     Route: 058
     Dates: start: 20220817
  2. NUTROPIN [Suspect]
     Active Substance: SOMATROPIN
  3. NUTROPIN [Suspect]
     Active Substance: SOMATROPIN
     Dosage: STOPPED
     Route: 058
     Dates: start: 20220817
  4. NUTROPIN [Suspect]
     Active Substance: SOMATROPIN

REACTIONS (4)
  - Wrong technique in product usage process [Unknown]
  - Fluid retention [Recovered/Resolved]
  - Oral pain [Recovered/Resolved]
  - Weight increased [Not Recovered/Not Resolved]
